FAERS Safety Report 5599218-4 (Version None)
Quarter: 2008Q1

REPORT INFORMATION
  Report Type: 
  Country: None (occurrence: None)
  Receive Date: 20080117
  Receipt Date: 20080104
  Transmission Date: 20080703
  Serious: Yes (Hospitalization, Other)
  Sender: FDA-Public Use
  Company Number: 2007BI027367

PATIENT
  Age: 28 Year
  Sex: Female
  Weight: 56.6996 kg

DRUGS (7)
  1. TYSABRI [Suspect]
     Indication: MULTIPLE SCLEROSIS
     Dosage: 300 MG; QM; IV
     Route: 042
     Dates: start: 20070719
  2. BACLOFEN [Concomitant]
  3. AMANTADINE HCL [Concomitant]
  4. ORAL CONTRACEPTIVE [Concomitant]
  5. WELLBUTRIN [Concomitant]
  6. VITAMIN [Concomitant]
  7. BOTOX [Concomitant]

REACTIONS (13)
  - BACTERIA URINE IDENTIFIED [None]
  - BLOOD ALBUMIN DECREASED [None]
  - BLOOD ALKALINE PHOSPHATASE DECREASED [None]
  - BLOOD URINE PRESENT [None]
  - COLITIS [None]
  - CULTURE STOOL POSITIVE [None]
  - GASTROENTERITIS [None]
  - HAEMATOCRIT DECREASED [None]
  - HAEMOGLOBIN DECREASED [None]
  - PLATELET COUNT DECREASED [None]
  - SHIGELLA INFECTION [None]
  - SYNCOPE [None]
  - URINE LEUKOCYTE ESTERASE POSITIVE [None]
